FAERS Safety Report 18057149 (Version 2)
Quarter: 2020Q3

REPORT INFORMATION
  Report Type: Spontaneous
  Country: PL (occurrence: PL)
  Receive Date: 20200723
  Receipt Date: 20200729
  Transmission Date: 20201103
  Serious: Yes (Hospitalization)
  Sender: FDA-Public Use
  Company Number: PL-B.I. PHARMACEUTICALS,INC./RIDGEFIELD-2020-BI-036222

PATIENT
  Age: 70 Year
  Sex: Male
  Weight: 94 kg

DRUGS (6)
  1. OFEV [Suspect]
     Active Substance: NINTEDANIB
     Indication: IDIOPATHIC PULMONARY FIBROSIS
     Route: 065
     Dates: start: 20191125, end: 20200620
  2. MIFLONIDE [Concomitant]
     Active Substance: BUDESONIDE
     Indication: COUGH
     Route: 055
     Dates: start: 201912
  3. HYPLAFIN [Concomitant]
     Indication: BENIGN PROSTATIC HYPERPLASIA
     Route: 048
  4. INDIX [Concomitant]
     Active Substance: INDAPAMIDE
     Indication: HYPERTENSION
     Route: 048
     Dates: start: 20200224
  5. ACARD [Concomitant]
     Active Substance: ASPIRIN
     Indication: MYOCARDIAL ISCHAEMIA
     Route: 048
     Dates: start: 20200224
  6. PROSTAMNIC [Concomitant]
     Indication: BENIGN PROSTATIC HYPERPLASIA
     Dosage: DOSAGE STRENGTH: 0.4
     Route: 048

REACTIONS (1)
  - Pulmonary tuberculosis [Not Recovered/Not Resolved]

NARRATIVE: CASE EVENT DATE: 20200620
